FAERS Safety Report 8618923-6 (Version None)
Quarter: 2012Q3

REPORT INFORMATION
  Report Type: 
  Country: None (occurrence: None)
  Receive Date: 20120824
  Receipt Date: 20120814
  Transmission Date: 20120928
  Serious: No
  Sender: FDA-Public Use
  Company Number: US-B.I. PHARMACEUTICALS,INC./RIDGEFIELD-2012-BP-19153BP

PATIENT
  Sex: Female
  Weight: 62 kg

DRUGS (3)
  1. ACIPHEX [Suspect]
     Indication: GASTRITIS
     Dates: start: 20120712
  2. XARELTO [Suspect]
     Indication: CEREBROVASCULAR ACCIDENT PROPHYLAXIS
     Dosage: 20 MG
     Route: 048
     Dates: start: 20120701
  3. PRADAXA [Suspect]
     Dates: start: 20120201, end: 20120716

REACTIONS (4)
  - GLOSSODYNIA [None]
  - FEELING ABNORMAL [None]
  - AGEUSIA [None]
  - DYSPHAGIA [None]
